FAERS Safety Report 13871484 (Version 2)
Quarter: 2017Q4

REPORT INFORMATION
  Report Type: Spontaneous
  Country: US (occurrence: US)
  Receive Date: 20170816
  Receipt Date: 20171012
  Transmission Date: 20180320
  Serious: Yes (Other)
  Sender: FDA-Public Use
  Company Number: US-BAYER-2017-155531

PATIENT
  Age: 33 Year
  Weight: 63.04 kg

DRUGS (1)
  1. MIRENA [Suspect]
     Active Substance: LEVONORGESTREL
     Indication: CONTRACEPTION
     Dosage: 20 MCG/24HR, CONT
     Route: 015
     Dates: start: 20170721, end: 20170809

REACTIONS (2)
  - Endometrial disorder [None]
  - Device dislocation [None]

NARRATIVE: CASE EVENT DATE: 2017
